FAERS Safety Report 16867263 (Version 1)
Quarter: 2019Q4

REPORT INFORMATION
  Report Type: Spontaneous
  Country: US (occurrence: US)
  Receive Date: 20190929
  Receipt Date: 20190929
  Transmission Date: 20200122
  Serious: Yes (Hospitalization)
  Sender: FDA-Public Use
  Company Number: None

PATIENT
  Age: 55 Year
  Sex: Female
  Weight: 54 kg

DRUGS (1)
  1. AIMOVIG [Suspect]
     Active Substance: ERENUMAB-AOOE
     Indication: PRODUCT USED FOR UNKNOWN INDICATION
     Route: 030

REACTIONS (7)
  - Nervous system disorder [None]
  - Myoclonus [None]
  - Paraesthesia [None]
  - Tremor [None]
  - Alopecia [None]
  - Constipation [None]
  - Muscle spasms [None]

NARRATIVE: CASE EVENT DATE: 20190824
